FAERS Safety Report 5374742-8 (Version None)
Quarter: 2007Q2

REPORT INFORMATION
  Report Type: 
  Country: None (occurrence: None)
  Receive Date: 20070625
  Receipt Date: 20070314
  Transmission Date: 20071010
  Serious: Yes (Hospitalization)
  Sender: FDA-Public Use
  Company Number: 07P-163-0356262-00

PATIENT
  Age: 57 Year
  Sex: Female
  Weight: 139 kg

DRUGS (1)
  1. HUMIRA [Suspect]
     Indication: RHEUMATOID ARTHRITIS
     Dosage: 40 MG, 1 IN 2 WK;
     Dates: start: 20060417, end: 20060612

REACTIONS (1)
  - ANAPHYLACTIC SHOCK [None]
